FAERS Safety Report 5433770-4 (Version None)
Quarter: 2007Q3

REPORT INFORMATION
  Report Type: 
  Country: None (occurrence: None)
  Receive Date: 20070831
  Receipt Date: 20070625
  Transmission Date: 20080115
  Serious: No
  Sender: FDA-Public Use
  Company Number: A0659536A

PATIENT
  Age: 46 Year
  Sex: Male

DRUGS (3)
  1. ALLI [Suspect]
     Dates: start: 20070615
  2. SYNTHROID [Concomitant]
  3. LITHIUM CARBONATE [Concomitant]

REACTIONS (5)
  - FAECES DISCOLOURED [None]
  - MALAISE [None]
  - NAUSEA [None]
  - STEATORRHOEA [None]
  - THERAPEUTIC RESPONSE UNEXPECTED [None]
